FAERS Safety Report 10506648 (Version 1)
Quarter: 2014Q3

REPORT INFORMATION
  Report Type: Spontaneous
  Country: US (occurrence: None)
  Receive Date: 20140915
  Receipt Date: 20140915
  Transmission Date: 20150326
  Serious: Yes (Other)
  Sender: FDA-Public Use
  Company Number: 2013-US-004210

PATIENT
  Age: 65 Year
  Sex: Male
  Weight: 97.1 kg

DRUGS (20)
  1. NIACIN. [Concomitant]
     Active Substance: NIACIN
  2. OMEGA [Concomitant]
     Active Substance: CONVALLARIA MAJALIS\CRATAEGUS LAEVIGATA LEAF\PROXYPHYLLINE
  3. XYREM [Suspect]
     Active Substance: SODIUM OXYBATE
     Indication: NARCOLEPSY
     Route: 048
     Dates: start: 20131205, end: 201312
  4. BABY ASPIRIN [Concomitant]
     Active Substance: ASPIRIN
  5. ETODOLAC. [Concomitant]
     Active Substance: ETODOLAC
  6. CALCIUM CARBONATE. [Concomitant]
     Active Substance: CALCIUM CARBONATE
  7. METFORMIN [Concomitant]
     Active Substance: METFORMIN HYDROCHLORIDE
  8. TESTERONE [Concomitant]
     Active Substance: TESTOSTERONE
  9. PEPCID [Concomitant]
     Active Substance: FAMOTIDINE
  10. FLONASE [Concomitant]
     Active Substance: FLUTICASONE PROPIONATE
  11. FIORINAL [Concomitant]
     Active Substance: ASPIRIN\BUTALBITAL\CAFFEINE
  12. XYREM [Suspect]
     Active Substance: SODIUM OXYBATE
     Indication: CATAPLEXY
     Route: 048
     Dates: start: 20131205, end: 201312
  13. CAPTOPRIL. [Concomitant]
     Active Substance: CAPTOPRIL
  14. MODAFINIL. [Concomitant]
     Active Substance: MODAFINIL
  15. COQ 10 [Concomitant]
     Active Substance: UBIDECARENONE
  16. CYMBALTA [Concomitant]
     Active Substance: DULOXETINE HYDROCHLORIDE
  17. LEVOTHYROXINE [Concomitant]
     Active Substance: LEVOTHYROXINE
  18. FISH OIL [Concomitant]
     Active Substance: FISH OIL
  19. PRAVASTATIN [Concomitant]
     Active Substance: PRAVASTATIN\PRAVASTATIN SODIUM
  20. CLARITIN [Concomitant]
     Active Substance: LORATADINE

REACTIONS (2)
  - Hypertension [None]
  - Migraine [None]

NARRATIVE: CASE EVENT DATE: 20131226
